FAERS Safety Report 12968317 (Version 1)
Quarter: 2016Q4

REPORT INFORMATION
  Report Type: Spontaneous
  Country: US (occurrence: US)
  Receive Date: 20161120
  Receipt Date: 20161120
  Transmission Date: 20170207
  Serious: No
  Sender: FDA-Public Use
  Company Number: None

PATIENT
  Age: 47 Year
  Sex: Male

DRUGS (1)
  1. BARACLUDE [Suspect]
     Active Substance: ENTECAVIR
     Route: 048
     Dates: start: 20150605, end: 20160316

REACTIONS (2)
  - Fatigue [None]
  - Back pain [None]

NARRATIVE: CASE EVENT DATE: 20160301
